FAERS Safety Report 9342617 (Version 1)
Quarter: 2013Q2

REPORT INFORMATION
  Report Type: Spontaneous
  Country: US (occurrence: US)
  Receive Date: 20130611
  Receipt Date: 20130611
  Transmission Date: 20140414
  Serious: Yes (Other)
  Sender: FDA-Public Use
  Company Number: US-CELGENEUS-163-20785-13022068

PATIENT
  Age: 73 Year
  Sex: Male
  Weight: 71.28 kg

DRUGS (7)
  1. THALOMID [Suspect]
     Indication: PLASMA CELL MYELOMA
     Dosage: 200 MILLIGRAM
     Route: 048
     Dates: start: 200712
  2. THALOMID [Suspect]
     Dosage: 100 MILLIGRAM
     Route: 048
     Dates: start: 200802
  3. THALOMID [Suspect]
     Dosage: 50 MILLIGRAM
     Route: 048
     Dates: start: 200807
  4. THALOMID [Suspect]
     Dosage: 50 MILLIGRAM
     Route: 048
     Dates: start: 201212
  5. THALOMID [Suspect]
     Dosage: 100 MILLIGRAM
     Route: 048
     Dates: start: 201301, end: 20130322
  6. ZOCOR [Concomitant]
     Indication: PRODUCT USED FOR UNKNOWN INDICATION
     Route: 065
  7. LOVASTATIN [Concomitant]
     Indication: PRODUCT USED FOR UNKNOWN INDICATION
     Route: 065

REACTIONS (15)
  - Squamous cell carcinoma of skin [Unknown]
  - Squamous cell carcinoma of skin [Unknown]
  - Squamous cell carcinoma of skin [Unknown]
  - Squamous cell carcinoma of skin [Unknown]
  - Squamous cell carcinoma of skin [Unknown]
  - Squamous cell carcinoma of skin [Unknown]
  - Squamous cell carcinoma of skin [Unknown]
  - Squamous cell carcinoma of skin [Unknown]
  - Squamous cell carcinoma of skin [Unknown]
  - Squamous cell carcinoma of skin [Unknown]
  - Squamous cell carcinoma of skin [Unknown]
  - Basal cell carcinoma [Unknown]
  - Basal cell carcinoma [Unknown]
  - Plasma cell myeloma [Unknown]
  - Drug ineffective [Unknown]
